FAERS Safety Report 9697051 (Version 2)
Quarter: 2014Q1

REPORT INFORMATION
  Report Type: Report from Study
  Country: ZA (occurrence: ZA)
  Receive Date: 20131120
  Receipt Date: 20140322
  Transmission Date: 20141002
  Serious: Yes (Death, Hospitalization)
  Sender: FDA-Public Use
  Company Number: ZA-ROCHE-1305755

PATIENT
  Sex: Female

DRUGS (6)
  1. MIRCERA [Suspect]
     Indication: NEPHROGENIC ANAEMIA
     Route: 058
     Dates: start: 20100402, end: 201009
  2. MIRCERA [Suspect]
     Route: 058
     Dates: start: 201009, end: 201201
  3. MIRCERA [Suspect]
     Route: 058
     Dates: start: 201201, end: 201204
  4. MIRCERA [Suspect]
     Route: 058
     Dates: start: 201204, end: 201205
  5. MIRCERA [Suspect]
     Route: 058
     Dates: start: 201306
  6. RECORMON [Concomitant]
     Route: 058
     Dates: start: 201205, end: 201305

REACTIONS (2)
  - Cerebrovascular accident [Unknown]
  - Death [Fatal]
